FAERS Safety Report 14449585 (Version 2)
Quarter: 2018Q2

REPORT INFORMATION
  Report Type: Spontaneous
  Country: DE (occurrence: DE)
  Receive Date: 20180128
  Receipt Date: 20180417
  Transmission Date: 20180711
  Serious: Yes (Other)
  Sender: FDA-Public Use
  Company Number: DE-TORRENT-00007673

PATIENT

DRUGS (2)
  1. CELECOXIB. [Suspect]
     Active Substance: CELECOXIB
     Indication: PROCEDURAL PAIN
  2. DICLOFENAC [Concomitant]
     Active Substance: DICLOFENAC
     Indication: PROCEDURAL PAIN

REACTIONS (2)
  - Off label use [Unknown]
  - Post procedural haemorrhage [Unknown]
